FAERS Safety Report 11057999 (Version 4)
Quarter: 2015Q3

REPORT INFORMATION
  Report Type: Spontaneous
  Country: JP (occurrence: JP)
  Receive Date: 20150423
  Receipt Date: 20150908
  Transmission Date: 20151125
  Serious: Yes (Life-Threatening, Other)
  Sender: FDA-Public Use
  Company Number: JP-AMGEN-JPNSP2015038625

PATIENT
  Age: 8 Decade
  Sex: Male
  Weight: 64.5 kg

DRUGS (11)
  1. EXCEGRAN [Concomitant]
     Active Substance: ZONISAMIDE
     Dosage: 1.2 G, UNK
     Route: 048
     Dates: start: 20150128
  2. MIYA-BM [Concomitant]
     Active Substance: CLOSTRIDIUM BUTYRICUM SPORES STRAIN M-55
     Indication: GASTROINTESTINAL DISORDER
     Dosage: 3 G, UNK
     Route: 048
     Dates: start: 20150128
  3. PROEMEND [Concomitant]
     Active Substance: FOSAPREPITANT
     Indication: PROPHYLAXIS
     Dosage: 150 MG, UNK
     Route: 041
     Dates: start: 20150204, end: 20150219
  4. TS-1 [Concomitant]
     Active Substance: GIMERACIL\OTERACIL\TEGAFUR
     Indication: RECTAL CANCER RECURRENT
     Dosage: 100 MG, UNK
     Route: 048
     Dates: start: 20150204, end: 20150210
  5. DECADRON                           /00016002/ [Concomitant]
     Active Substance: DEXAMETHASONE
     Indication: PROPHYLAXIS
     Dosage: 1.65 MG, UNK
     Route: 042
     Dates: start: 20150204, end: 20150219
  6. ELPLAT [Concomitant]
     Active Substance: OXALIPLATIN
     Indication: RECTAL CANCER RECURRENT
     Dosage: 150 MG, Q2WEEKS
     Route: 041
     Dates: start: 20150204, end: 20150204
  7. VECTIBIX [Suspect]
     Active Substance: PANITUMUMAB
     Indication: RECTAL CANCER RECURRENT
     Dosage: 440 MG, Q2WEEKS
     Route: 041
     Dates: start: 20150204, end: 20150219
  8. ALOXI [Concomitant]
     Active Substance: PALONOSETRON HYDROCHLORIDE
     Indication: PROPHYLAXIS
     Dosage: 0.75 MG, UNK
     Route: 041
     Dates: start: 20150204, end: 20150219
  9. MINOMYCIN [Concomitant]
     Active Substance: MINOCYCLINE HYDROCHLORIDE
     Indication: PROPHYLAXIS
     Dosage: 100 MG, UNK
     Route: 048
     Dates: start: 20150204
  10. TAKEPRON [Concomitant]
     Active Substance: LANSOPRAZOLE
     Indication: GASTRIC ULCER
     Dosage: 15 MG, UNK
     Route: 048
     Dates: start: 20150128
  11. POLARAMINE [Concomitant]
     Active Substance: DEXCHLORPHENIRAMINE MALEATE
     Indication: PROPHYLAXIS
     Dosage: 5 MG, UNK
     Route: 041
     Dates: start: 20150204, end: 20150219

REACTIONS (9)
  - Pyrexia [Unknown]
  - Rash generalised [Recovering/Resolving]
  - Necrotising colitis [Recovered/Resolved]
  - Decreased appetite [Unknown]
  - Oropharyngeal pain [Unknown]
  - Dry mouth [Unknown]
  - Hiccups [Unknown]
  - Stomatitis [Unknown]
  - Dry skin [Unknown]

NARRATIVE: CASE EVENT DATE: 20150210
